FAERS Safety Report 5969898-X (Version None)
Quarter: 2008Q4

REPORT INFORMATION
  Report Type: 
  Country: None (occurrence: None)
  Receive Date: 20081126
  Receipt Date: 20081114
  Transmission Date: 20090506
  Serious: Yes (Other)
  Sender: FDA-Public Use
  Company Number: ZA-PFIZER INC-2008096854

PATIENT
  Sex: Male

DRUGS (1)
  1. VFEND [Suspect]
     Route: 042

REACTIONS (1)
  - STATUS EPILEPTICUS [None]
